FAERS Safety Report 9596921 (Version 1)
Quarter: 2013Q4

REPORT INFORMATION
  Report Type: Report from Study
  Country: US (occurrence: US)
  Receive Date: 20131004
  Receipt Date: 20131004
  Transmission Date: 20140711
  Serious: Yes (Hospitalization)
  Sender: FDA-Public Use
  Company Number: US-TEVA-435994USA

PATIENT
  Age: 3 Month
  Sex: Female
  Weight: 3.9 kg

DRUGS (8)
  1. LESTAURTINIB [Suspect]
     Dates: start: 20121206, end: 20130219
  2. CYCLOPHOSPHAMIDE [Suspect]
     Dates: start: 20121206, end: 20130211
  3. CYTARABINE [Suspect]
     Dates: start: 20121206, end: 20130131
  4. ETOPOSIDE [Suspect]
     Dates: start: 20121206, end: 20130211
  5. HYDROCORTISONE [Suspect]
     Dates: start: 20121206, end: 20130131
  6. FOLINIC ACID [Suspect]
     Dates: start: 20121206, end: 20130203
  7. METHOTREXATE [Suspect]
     Dates: start: 20121206, end: 20130131
  8. METHOTREXATE [Suspect]
     Route: 037

REACTIONS (1)
  - Decreased appetite [Not Recovered/Not Resolved]
